FAERS Safety Report 6303489-6 (Version None)
Quarter: 2009Q3

REPORT INFORMATION
  Report Type: 
  Country: None (occurrence: None)
  Receive Date: 20090810
  Receipt Date: 20090731
  Transmission Date: 20100115
  Serious: Yes (Hospitalization, Disabling)
  Sender: FDA-Public Use
  Company Number: FR-TEVA-204904USA

PATIENT
  Sex: Male

DRUGS (4)
  1. BISELECT [Suspect]
     Route: 048
  2. ZOLINZA [Suspect]
     Indication: MYCOSIS FUNGOIDES REFRACTORY
     Dosage: 4 DOSAGE FORMS (1DOSAGE FORM 1 IN 1 D)
     Route: 048
     Dates: start: 20071101
  3. FUROSEMIDE [Suspect]
     Route: 048
  4. RAMIPRIL [Suspect]
     Dosage: 40 MG (5MG)
     Route: 048

REACTIONS (2)
  - EXTREMITY NECROSIS [None]
  - SKIN ULCER [None]
